FAERS Safety Report 20895472 (Version 1)
Quarter: 2022Q2

REPORT INFORMATION
  Report Type: Spontaneous
  Country: US (occurrence: None)
  Receive Date: 20220528
  Receipt Date: 20220528
  Transmission Date: 20220721
  Serious: Yes (Other)
  Sender: FDA-Public Use
  Company Number: None

PATIENT
  Age: 59 Year
  Sex: Female
  Weight: 68.85 kg

DRUGS (13)
  1. BUPROPION [Suspect]
     Active Substance: BUPROPION
     Indication: Depression
     Dosage: FREQUENCY : DAILY;?
     Route: 048
  2. BUPROPION [Suspect]
     Active Substance: BUPROPION
     Indication: Anxiety
  3. CITALOPRAM [Concomitant]
     Active Substance: CITALOPRAM HYDROBROMIDE
  4. BUPROPION [Concomitant]
     Active Substance: BUPROPION
  5. LEVOTHYROXINE [Concomitant]
     Active Substance: LEVOTHYROXINE
  6. SPIRONOLACTONE [Concomitant]
     Active Substance: SPIRONOLACTONE
  7. Symvistatiin [Concomitant]
  8. VITAMINS [Concomitant]
     Active Substance: VITAMINS
  9. CALCIUM [Concomitant]
     Active Substance: CALCIUM
  10. VITAMIN E [Concomitant]
     Active Substance: .ALPHA.-TOCOPHEROL
  11. METAMUCIL [Concomitant]
     Active Substance: PLANTAGO SEED
  12. PREVACID [Concomitant]
     Active Substance: LANSOPRAZOLE
  13. BENADRYL [Concomitant]
     Active Substance: DIPHENHYDRAMINE HYDROCHLORIDE

REACTIONS (9)
  - Feeling abnormal [None]
  - Migraine [None]
  - Nausea [None]
  - Insomnia [None]
  - Dizziness [None]
  - Confusional state [None]
  - Heart rate increased [None]
  - Hyperhidrosis [None]
  - Chills [None]

NARRATIVE: CASE EVENT DATE: 20220527
